FAERS Safety Report 25413033 (Version 1)
Quarter: 2025Q2

REPORT INFORMATION
  Report Type: Spontaneous
  Country: US (occurrence: US)
  Receive Date: 20250609
  Receipt Date: 20250609
  Transmission Date: 20250716
  Serious: No
  Sender: ROCHE
  Company Number: US-ROCHE-10000300985

PATIENT
  Sex: Female

DRUGS (3)
  1. XOLAIR [Suspect]
     Active Substance: OMALIZUMAB
     Indication: Urticaria
     Route: 058
     Dates: start: 202310
  2. SOLU-CORTEF VIAL [Concomitant]
  3. NORDITROPIN [Concomitant]
     Active Substance: SOMATROPIN

REACTIONS (3)
  - Off label use [Unknown]
  - No adverse event [Unknown]
  - Product physical issue [Unknown]
